FAERS Safety Report 9344319 (Version 1)
Quarter: 2013Q2

REPORT INFORMATION
  Report Type: Not Available
  Country: CH (occurrence: CH)
  Receive Date: 20130612
  Receipt Date: 20130612
  Transmission Date: 20140414
  Serious: Yes (Other)
  Sender: FDA-Public Use
  Company Number: CH-ASTELLAS-2013EU004721

PATIENT
  Age: 20 Year
  Sex: Female

DRUGS (1)
  1. VESICARE [Suspect]
     Indication: ESSENTIAL HYPERTENSION
     Dosage: UNK
     Route: 048
     Dates: end: 20130513

REACTIONS (1)
  - Exposure during pregnancy [Unknown]
